FAERS Safety Report 4757432-1 (Version None)
Quarter: 2005Q3

REPORT INFORMATION
  Report Type: 
  Country: None (occurrence: None)
  Receive Date: 20050831
  Receipt Date: 20050824
  Transmission Date: 20060218
  Serious: Yes (Hospitalization)
  Sender: FDA-Public Use
  Company Number: 200512428JP

PATIENT
  Age: 73 Year
  Sex: Male
  Weight: 70 kg

DRUGS (10)
  1. ARAVA [Suspect]
     Indication: RHEUMATOID ARTHRITIS
     Route: 048
     Dates: start: 20040508, end: 20040807
  2. PREDNISOLONE [Concomitant]
     Indication: RHEUMATOID ARTHRITIS
     Route: 048
     Dates: start: 19980508
  3. METHIMAZOLE [Concomitant]
     Indication: HYPERTHYROIDISM
     Route: 048
  4. VASOMET [Concomitant]
     Indication: BENIGN PROSTATIC HYPERPLASIA
     Route: 048
  5. LETRAC [Concomitant]
     Indication: RHEUMATOID ARTHRITIS
     Route: 048
  6. APLACE [Concomitant]
     Indication: GASTRITIS
     Route: 048
  7. APLACE [Concomitant]
     Indication: PROPHYLAXIS
     Route: 048
  8. INDERAL [Concomitant]
     Indication: TACHYARRHYTHMIA
     Route: 048
  9. LENDORMIN [Concomitant]
     Indication: INSOMNIA
     Route: 048
  10. ALOSENN [Concomitant]
     Indication: CONSTIPATION
     Route: 048

REACTIONS (1)
  - LUNG NEOPLASM MALIGNANT [None]
